FAERS Safety Report 20955274 (Version 1)
Quarter: 2022Q2

REPORT INFORMATION
  Report Type: Report from Study
  Country: US (occurrence: US)
  Receive Date: 20220614
  Receipt Date: 20220614
  Transmission Date: 20220721
  Serious: No
  Sender: FDA-Public Use
  Company Number: US-PFM-2019-06414

PATIENT

DRUGS (2)
  1. PROPRANOLOL HYDROCHLORIDE [Suspect]
     Active Substance: PROPRANOLOL HYDROCHLORIDE
     Indication: Infantile haemangioma
     Dosage: 1 MG/KG/DAY DIVIDED TWICE DAILY
     Route: 065
  2. PROPRANOLOL HYDROCHLORIDE [Suspect]
     Active Substance: PROPRANOLOL HYDROCHLORIDE
     Dosage: 2 MG/KG/DAY DIVIDED TWICE DAILY
     Route: 065

REACTIONS (10)
  - Cyanosis [Unknown]
  - Tremor [Unknown]
  - Heart rate decreased [Unknown]
  - Blood pressure decreased [Unknown]
  - Sleep disorder [Unknown]
  - Diarrhoea [Unknown]
  - Peripheral coldness [Unknown]
  - Decreased appetite [Unknown]
  - Fatigue [Unknown]
  - Respiratory symptom [Unknown]
